FAERS Safety Report 12411879 (Version 2)
Quarter: 2016Q2

REPORT INFORMATION
  Report Type: Spontaneous
  Country: US (occurrence: US)
  Receive Date: 20160527
  Receipt Date: 20160613
  Transmission Date: 20160815
  Serious: No
  Sender: FDA-Public Use
  Company Number: US-JNJFOC-20160515351

PATIENT
  Age: 56 Year
  Sex: Male
  Weight: 92.99 kg

DRUGS (1)
  1. DURAGESIC [Suspect]
     Active Substance: FENTANYL
     Indication: PRODUCT USED FOR UNKNOWN INDICATION
     Dosage: 100 UG/HR AND 25 UG/HR
     Route: 062

REACTIONS (4)
  - Product quality issue [Unknown]
  - Pruritus [Unknown]
  - Wrong technique in product usage process [Unknown]
  - Product label issue [Unknown]

NARRATIVE: CASE EVENT DATE: 20160515
